FAERS Safety Report 17187203 (Version 2)
Quarter: 2020Q1

REPORT INFORMATION
  Report Type: Report from Study
  Country: US (occurrence: US)
  Receive Date: 20191220
  Receipt Date: 20200318
  Transmission Date: 20200409
  Serious: Yes (Other)
  Sender: FDA-Public Use
  Company Number: NVSC2019US073371

PATIENT
  Age: 1 Year
  Sex: Male

DRUGS (3)
  1. KYMRIAH [Suspect]
     Active Substance: TISAGENLECLEUCEL
     Indication: B-CELL TYPE ACUTE LEUKAEMIA
     Dosage: UNK, ONCE/SINGLE
     Route: 041
     Dates: start: 2019
  2. CYCLOPHOSPHAMIDE. [Concomitant]
     Active Substance: CYCLOPHOSPHAMIDE
     Indication: CHEMOTHERAPY
     Route: 065
  3. FLUDARABINE [Concomitant]
     Active Substance: FLUDARABINE PHOSPHATE
     Indication: CHEMOTHERAPY
     Route: 065

REACTIONS (13)
  - Haematocrit decreased [Not Recovered/Not Resolved]
  - Respirovirus test positive [Unknown]
  - Rhinovirus infection [Unknown]
  - Haemoglobin decreased [Not Recovered/Not Resolved]
  - Upper respiratory tract infection [Unknown]
  - Platelet count decreased [Recovering/Resolving]
  - Sinusitis [Unknown]
  - Minimal residual disease [Unknown]
  - Staphylococcal infection [Unknown]
  - Rubulavirus test positive [Unknown]
  - Lymphocyte count decreased [Recovering/Resolving]
  - Hypogammaglobulinaemia [Recovered/Resolved]
  - Enterovirus infection [Unknown]
